FAERS Safety Report 23578186 (Version 1)
Quarter: 2024Q1

REPORT INFORMATION
  Report Type: Spontaneous
  Country: IR (occurrence: IR)
  Receive Date: 20240229
  Receipt Date: 20240229
  Transmission Date: 20240410
  Serious: Yes (Life-Threatening, Hospitalization, Other)
  Sender: FDA-Public Use
  Company Number: IR-ALKEM LABORATORIES LIMITED-IR-ALKEM-2024-03289

PATIENT
  Age: 17 Year
  Sex: Female

DRUGS (2)
  1. AMLODIPINE BESYLATE [Suspect]
     Active Substance: AMLODIPINE BESYLATE
     Indication: Suicide attempt
     Dosage: 250 MILLIGRAM
     Route: 065
  2. PROPRANOLOL [Suspect]
     Active Substance: PROPRANOLOL HYDROCHLORIDE
     Indication: Suicide attempt
     Dosage: 22.5 MILLIGRAM
     Route: 065

REACTIONS (7)
  - Shock [Unknown]
  - Suicide attempt [Unknown]
  - Non-cardiogenic pulmonary oedema [Unknown]
  - Multiple organ dysfunction syndrome [Unknown]
  - Toxicity to various agents [Unknown]
  - Intentional overdose [Unknown]
  - Acute kidney injury [Unknown]
